FAERS Safety Report 8015325-0 (Version None)
Quarter: 2011Q4

REPORT INFORMATION
  Report Type: 
  Country: None (occurrence: None)
  Receive Date: 20111230
  Receipt Date: 20111221
  Transmission Date: 20120403
  Serious: Yes (Other)
  Sender: FDA-Public Use
  Company Number: US-PERRIGO-11US010459

PATIENT
  Sex: Female
  Weight: 27.664 kg

DRUGS (1)
  1. IBUPROFEN [Suspect]
     Indication: INFLUENZA LIKE ILLNESS
     Dosage: 200 MG, SINGLE
     Route: 048
     Dates: start: 20111129, end: 20111129

REACTIONS (2)
  - ANAPHYLACTIC REACTION [None]
  - PHARYNGEAL OEDEMA [None]
